FAERS Safety Report 10387799 (Version 3)
Quarter: 2015Q3

REPORT INFORMATION
  Report Type: Spontaneous
  Country: US (occurrence: US)
  Receive Date: 20140815
  Receipt Date: 20150817
  Transmission Date: 20151125
  Serious: No
  Sender: FDA-Public Use
  Company Number: US-GILEAD-2014-0111737

PATIENT
  Age: 72 Year
  Sex: Female
  Weight: 61.22 kg

DRUGS (4)
  1. XARELTO [Concomitant]
     Active Substance: RIVAROXABAN
  2. REMODULIN [Suspect]
     Active Substance: TREPROSTINIL
     Indication: LUNG DISORDER
     Dosage: 0.081 ?G/KG/MIN
     Route: 058
     Dates: start: 20130926
  3. ADCIRCA [Concomitant]
     Active Substance: TADALAFIL
  4. LETAIRIS [Suspect]
     Active Substance: AMBRISENTAN
     Indication: PRODUCT USED FOR UNKNOWN INDICATION
     Dosage: 5 MG, QD
     Route: 065
     Dates: start: 20140410

REACTIONS (1)
  - Malaise [Unknown]
